FAERS Safety Report 7753674-1 (Version None)
Quarter: 2011Q3

REPORT INFORMATION
  Report Type: 
  Country: None (occurrence: None)
  Receive Date: 20110915
  Receipt Date: 20110915
  Transmission Date: 20111222
  Serious: Yes (Disabling)
  Sender: FDA-Public Use
  Company Number: None

PATIENT
  Sex: Male
  Weight: 101.6 kg

DRUGS (1)
  1. LIPITOR [Suspect]
     Indication: HYPERLIPIDAEMIA
     Dosage: 1 TAB
     Route: 048
     Dates: start: 20110707, end: 20110807

REACTIONS (6)
  - PYREXIA [None]
  - FATIGUE [None]
  - NIGHT SWEATS [None]
  - MYALGIA [None]
  - DECREASED APPETITE [None]
  - CHROMATURIA [None]
